FAERS Safety Report 8382897-6 (Version None)
Quarter: 2012Q2

REPORT INFORMATION
  Report Type: 
  Country: None (occurrence: None)
  Receive Date: 20120509
  Receipt Date: 20120424
  Transmission Date: 20120825
  Serious: Yes (Hospitalization)
  Sender: FDA-Public Use
  Company Number: 2012PROUSA01252

PATIENT
  Age: 84 Year
  Sex: 0
  Weight: 70.9 kg

DRUGS (7)
  1. HYDROCORTISON	/00028601/ (HYDROCORTISONE) [Concomitant]
  2. ZOLADEX /00732101/ (GOSERELIN) [Concomitant]
  3. VITAMIN B 12 (VITAMIN B NOS) [Concomitant]
  4. PRILOSEC [Concomitant]
  5. PROVENGE [Suspect]
     Indication: PROSTATE CANCER METASTATIC
     Dosage: 250 ML, SINGLE, INTRAVENOUS
     Route: 042
     Dates: start: 20120323, end: 20120323
  6. DYAZIDE [Concomitant]
  7. KETOCONAZOLE [Concomitant]

REACTIONS (4)
  - THROMBOSIS IN DEVICE [None]
  - STAPHYLOCOCCUS TEST POSITIVE [None]
  - DEVICE RELATED INFECTION [None]
  - STREPTOCOCCUS TEST POSITIVE [None]
